FAERS Safety Report 4436331-9 (Version None)
Quarter: 2004Q3

REPORT INFORMATION
  Report Type: 
  Country: None (occurrence: None)
  Receive Date: 20040728
  Receipt Date: 20030606
  Transmission Date: 20050211
  Serious: Yes (Hospitalization)
  Sender: FDA-Public Use
  Company Number: 201149

PATIENT
  Sex: Female

DRUGS (4)
  1. RITUXAN [Suspect]
     Indication: NON-HODGKIN'S LYMPHOMA
     Dosage: SINGLE, INTRAVENOUS
     Route: 042
  2. IN-111 ZEVALIN (IBRITUMOMA TIUXETAN, YTTRIUM-90) [Suspect]
     Indication: NON-HODGKIN'S LYMPHOMA
     Dosage: SINGLE, INTRAVENOUS
     Route: 042
  3. ZEVALIN [Suspect]
     Indication: NON-HODGKIN'S LYMPHOMA
     Dosage: SINGLE, INTRAVENOUS
     Route: 042
  4. IBRITUMOMAB TIUXETAN (IBRITUMOMAB TIUXETAN) [Suspect]
     Indication: NON-HODGKIN'S LYMPHOMA
     Dosage: SINGLE, INTRAVENOUS
     Route: 042

REACTIONS (1)
  - NEUTROPENIA [None]
